FAERS Safety Report 14957838 (Version 2)
Quarter: 2018Q4

REPORT INFORMATION
  Report Type: Spontaneous
  Country: JP (occurrence: JP)
  Receive Date: 20180531
  Receipt Date: 20181011
  Transmission Date: 20190204
  Serious: Yes (Other)
  Sender: FDA-Public Use
  Company Number: PHJP2018JP011666

PATIENT
  Age: 27 Year
  Sex: Female

DRUGS (1)
  1. AFINITOR [Suspect]
     Active Substance: EVEROLIMUS
     Indication: KIDNEY ANGIOMYOLIPOMA
     Dosage: 5 MG, QD
     Route: 048

REACTIONS (7)
  - Blood pressure decreased [Unknown]
  - Glucose tolerance impaired [Recovered/Resolved]
  - Renal haemorrhage [Recovered/Resolved]
  - Pallor [Unknown]
  - Haemoglobin decreased [Unknown]
  - Shock haemorrhagic [Recovered/Resolved]
  - Sense of oppression [Unknown]
